FAERS Safety Report 11755998 (Version 1)
Quarter: 2015Q4

REPORT INFORMATION
  Report Type: Spontaneous
  Country: US (occurrence: US)
  Receive Date: 20151119
  Receipt Date: 20151119
  Transmission Date: 20160304
  Serious: No
  Sender: FDA-Public Use
  Company Number: US-ALLERGAN-1511068US

PATIENT
  Sex: Male

DRUGS (2)
  1. ALPHAGAN P [Suspect]
     Active Substance: BRIMONIDINE TARTRATE
     Indication: PRODUCT USED FOR UNKNOWN INDICATION
     Dosage: UNK
     Route: 047
     Dates: end: 20150607
  2. COSOPT [Concomitant]
     Active Substance: DORZOLAMIDE HYDROCHLORIDE\TIMOLOL MALEATE

REACTIONS (6)
  - Drug administered at inappropriate site [Unknown]
  - Ocular hyperaemia [Unknown]
  - Conjunctivitis [Unknown]
  - Intraocular pressure increased [Not Recovered/Not Resolved]
  - Eyelid oedema [Unknown]
  - Hypersensitivity [Recovered/Resolved]
